FAERS Safety Report 23427319 (Version 2)
Quarter: 2024Q1

REPORT INFORMATION
  Report Type: Report from Study
  Country: VN (occurrence: VN)
  Receive Date: 20240122
  Receipt Date: 20240131
  Transmission Date: 20240409
  Serious: Yes (Other)
  Sender: FDA-Public Use
  Company Number: VN-BAYER-2024A010106

PATIENT
  Age: 61 Year
  Sex: Male

DRUGS (2)
  1. EYLEA [Suspect]
     Active Substance: AFLIBERCEPT
     Indication: Diabetic retinal oedema
     Dosage: 2 MG, SOLUTION FOR INJECTION, 40MG/ML
     Dates: start: 20230920, end: 20230920
  2. EYLEA [Suspect]
     Active Substance: AFLIBERCEPT
     Dosage: UNK,RIGHT EYE, SOLUTION FOR INJECTION, 40 MG/ML
     Dates: start: 20231018

REACTIONS (2)
  - Cataract [Unknown]
  - Vision blurred [Unknown]

NARRATIVE: CASE EVENT DATE: 20231222
